FAERS Safety Report 7108183-X (Version None)
Quarter: 2010Q4

REPORT INFORMATION
  Report Type: 
  Country: None (occurrence: None)
  Receive Date: 20101109
  Receipt Date: 20101104
  Transmission Date: 20110411
  Serious: Yes (Hospitalization)
  Sender: FDA-Public Use
  Company Number: 2010SP058674

PATIENT
  Age: 24 Year
  Sex: Male

DRUGS (2)
  1. TEMODAL [Suspect]
     Indication: ASTROCYTOMA
     Dosage: 300 MG
     Dates: start: 20100101, end: 20100101
  2. TEMODAL [Suspect]
     Indication: ASTROCYTOMA
     Dosage: 300 MG
     Dates: start: 20100101, end: 20100101

REACTIONS (4)
  - OPPORTUNISTIC INFECTION [None]
  - PLATELET COUNT DECREASED [None]
  - PNEUMONIA [None]
  - WHITE BLOOD CELL COUNT DECREASED [None]
